FAERS Safety Report 7669199 (Version 4)
Quarter: 2013Q4

REPORT INFORMATION
  Report Type: Spontaneous
  Country: US (occurrence: US)
  Receive Date: 20101115
  Receipt Date: 20131007
  Transmission Date: 20140711
  Serious: Yes (Hospitalization, Other)
  Sender: FDA-Public Use
  Company Number: US-ROCHE-718957

PATIENT
  Age: 21 Year
  Sex: Male
  Weight: 88.5 kg

DRUGS (7)
  1. ACCUTANE [Suspect]
     Indication: ACNE
     Route: 048
  2. ACCUTANE [Suspect]
     Route: 048
     Dates: start: 20011121, end: 20020828
  3. NIZORAL [Concomitant]
  4. VECTRIN [Concomitant]
     Route: 065
  5. DOXYCYCLINE [Concomitant]
     Route: 065
  6. TAZORAC [Concomitant]
     Route: 065
  7. PREDNISONE [Concomitant]

REACTIONS (9)
  - Colitis ulcerative [Unknown]
  - Small intestinal obstruction [Unknown]
  - Crohn^s disease [Unknown]
  - Gastrointestinal injury [Unknown]
  - Colitis [Unknown]
  - Proctitis [Unknown]
  - Large intestine polyp [Unknown]
  - Inflammatory bowel disease [Unknown]
  - Alopecia [Unknown]
